FAERS Safety Report 7931139-1 (Version None)
Quarter: 2011Q4

REPORT INFORMATION
  Report Type: 
  Country: None (occurrence: None)
  Receive Date: 20111121
  Receipt Date: 20111103
  Transmission Date: 20120403
  Serious: No
  Sender: FDA-Public Use
  Company Number: US-B.I. PHARMACEUTICALS,INC./RIDGEFIELD-2011-BP-25553BP

PATIENT
  Sex: Male

DRUGS (4)
  1. LOSARTAN [Concomitant]
     Dosage: 100 MG
     Route: 048
  2. HYDROCHLOROTHIAZIDE [Concomitant]
     Dosage: 25 MG
     Route: 048
  3. PRADAXA [Suspect]
     Dosage: 300 MG
     Route: 048
     Dates: start: 20110121
  4. HYDRALAZINE HCL [Concomitant]
     Dosage: 225 MG
     Route: 048

REACTIONS (2)
  - URINARY TRACT INFECTION [None]
  - HEADACHE [None]
